FAERS Safety Report 7013544-3 (Version None)
Quarter: 2010Q3

REPORT INFORMATION
  Report Type: 
  Country: None (occurrence: None)
  Receive Date: 20100924
  Receipt Date: 20100915
  Transmission Date: 20110219
  Serious: Yes (Other)
  Sender: FDA-Public Use
  Company Number: PHHY2010US61506

PATIENT
  Sex: Female

DRUGS (1)
  1. GLEEVEC [Suspect]
     Indication: THYROID CANCER
     Dosage: 600 MG

REACTIONS (2)
  - GLAUCOMA SURGERY [None]
  - MEMORY IMPAIRMENT [None]
